FAERS Safety Report 8955816 (Version 1)
Quarter: 2012Q4

REPORT INFORMATION
  Report Type: Spontaneous
  Country: DK (occurrence: None)
  Receive Date: 20121130
  Receipt Date: 20121130
  Transmission Date: 20130627
  Serious: Yes (Other)
  Sender: FDA-Public Use
  Company Number: 2012MA013552

PATIENT
  Age: 42 Year
  Sex: Female

DRUGS (1)
  1. PACLITAXEL [Suspect]
     Indication: MALIGNANT NEOPLASM OF OVARY
     Route: 042
     Dates: start: 20121109, end: 20121109

REACTIONS (5)
  - Dyspnoea [None]
  - Vasoconstriction [None]
  - Cyanosis [None]
  - Back pain [None]
  - Abdominal pain [None]
